FAERS Safety Report 5286706-3 (Version None)
Quarter: 2007Q1

REPORT INFORMATION
  Report Type: 
  Country: None (occurrence: None)
  Receive Date: 20070329
  Receipt Date: 20070227
  Transmission Date: 20070707
  Serious: Yes (Other)
  Sender: FDA-Public Use
  Company Number: 6030649

PATIENT
  Age: 63 Year
  Sex: Female

DRUGS (6)
  1. MARFARIN (WARFARIN SODIUM) [Suspect]
     Indication: LEFT VENTRICULAR FAILURE
     Dosage: 2,500 MG (2, 5 MG, 1 IN 1 D) ORAL
     Route: 048
     Dates: start: 20061203, end: 20061208
  2. BLOCALCIN (DILTIAZEM HYDROCHLORIDE) [Concomitant]
  3. ACCUPRIL [Concomitant]
  4. QUAMATEL (FAMOTIDINE) [Concomitant]
  5. EZETROL (EZETIMIBE) [Concomitant]
  6. ZOLPIDEM TARTRATE [Concomitant]

REACTIONS (5)
  - HEADACHE [None]
  - HYPERTENSION [None]
  - TACHYCARDIA [None]
  - VENTRICULAR FAILURE [None]
  - VERTIGO [None]
